FAERS Safety Report 23351141 (Version 1)
Quarter: 2023Q4

REPORT INFORMATION
  Report Type: Spontaneous
  Country: US (occurrence: US)
  Receive Date: 20231229
  Receipt Date: 20231229
  Transmission Date: 20240109
  Serious: Yes (Other)
  Sender: FDA-Public Use
  Company Number: US-BAYER-2023A182620

PATIENT
  Age: 77 Year
  Sex: Male

DRUGS (2)
  1. ALKA SELTZER PLUS SEVERE COLD AND FLU POWERFAST FIZZ [Suspect]
     Active Substance: ACETAMINOPHEN\CHLORPHENIRAMINE\DEXTROMETHORPHAN\PHENYLEPHRINE
     Indication: Hypersensitivity
     Dosage: 2 DF, QD
     Route: 048
     Dates: start: 20231214, end: 20231214
  2. ALKA SELTZER PLUS SEVERE COLD AND FLU POWERFAST FIZZ [Suspect]
     Active Substance: ACETAMINOPHEN\CHLORPHENIRAMINE\DEXTROMETHORPHAN\PHENYLEPHRINE
     Indication: Nasopharyngitis

REACTIONS (1)
  - Palpitations [Recovered/Resolved]

NARRATIVE: CASE EVENT DATE: 20231214
